FAERS Safety Report 13021001 (Version 2)
Quarter: 2017Q1

REPORT INFORMATION
  Report Type: Spontaneous
  Country: US (occurrence: US)
  Receive Date: 20161213
  Receipt Date: 20170214
  Transmission Date: 20170428
  Serious: Yes (Other)
  Sender: FDA-Public Use
  Company Number: US-ASTRAZENECA-2016SF29511

PATIENT
  Sex: Male
  Weight: 95.3 kg

DRUGS (1)
  1. TUDORZA PRESSAIR [Suspect]
     Active Substance: ACLIDINIUM BROMIDE
     Indication: EMPHYSEMA
     Dosage: 400 UG, ONE PUFF, TWO TIMES A DAY
     Route: 055

REACTIONS (4)
  - Drug dose omission [Unknown]
  - Intentional device misuse [Unknown]
  - Device malfunction [Unknown]
  - Pneumothorax [Unknown]
